FAERS Safety Report 7479685-1 (Version None)
Quarter: 2011Q2

REPORT INFORMATION
  Report Type: 
  Country: None (occurrence: None)
  Receive Date: 20110513
  Receipt Date: 20110328
  Transmission Date: 20111010
  Serious: Yes (Hospitalization)
  Sender: FDA-Public Use
  Company Number: US-BAYER-201039144NA

PATIENT
  Age: 36 Year
  Sex: Female
  Weight: 122.45 kg

DRUGS (5)
  1. ASCORBIC ACID [Concomitant]
  2. YAZ [Suspect]
     Dosage: UNK
     Route: 048
     Dates: start: 20070801, end: 20080201
  3. ONGLYZA [Concomitant]
     Indication: DIABETES MELLITUS
     Dosage: UNK
     Dates: start: 20070101
  4. PHENYLBUTAZONE [Concomitant]
  5. DIOVAN HCT [Concomitant]
     Dosage: UNK
     Dates: start: 20070201, end: 20070208

REACTIONS (2)
  - THROMBOSIS [None]
  - DEEP VEIN THROMBOSIS [None]
